FAERS Safety Report 5051515-7 (Version None)
Quarter: 2006Q3

REPORT INFORMATION
  Report Type: 
  Country: None (occurrence: None)
  Receive Date: 20060711
  Receipt Date: 20060630
  Transmission Date: 20061208
  Serious: Yes (Hospitalization)
  Sender: FDA-Public Use
  Company Number: 2006S1000050

PATIENT
  Age: 50 Year
  Sex: Female

DRUGS (17)
  1. CUBICIN [Suspect]
     Indication: OSTEOMYELITIS
     Dosage: 320 MG; Q24H; IV
     Route: 042
  2. RIFAMPIN [Suspect]
     Indication: OSTEOMYELITIS
     Dates: start: 20060101, end: 20060309
  3. VANCOMYCIN [Concomitant]
  4. RIFAMPIN [Concomitant]
  5. ROCEPHIN [Concomitant]
  6. INSULIN [Concomitant]
  7. CAPTOPRIL [Concomitant]
  8. ATORVASTATIN CALCIUM [Concomitant]
  9. METOCLOPRAMIDE [Concomitant]
  10. VALPROATE SEMISDOIUM [Concomitant]
  11. ASPIRIN TAB [Concomitant]
  12. GLUCOSAMINE [Concomitant]
  13. LEVOTHYROXINE SODIUM [Concomitant]
  14. PSEUDOEPHEDRINE HCL [Concomitant]
  15. ESTROGENS [Concomitant]
  16. CALCIUM CITRATE [Concomitant]
  17. VITAMIN D [Concomitant]

REACTIONS (10)
  - CHILLS [None]
  - EOSINOPHILIA [None]
  - GENERALISED OEDEMA [None]
  - LEUKOCYTOSIS [None]
  - NEPHRITIS INTERSTITIAL [None]
  - PYREXIA [None]
  - RASH [None]
  - SKIN EXFOLIATION [None]
  - SWELLING [None]
  - THERAPEUTIC AGENT TOXICITY [None]
